FAERS Safety Report 4772322-6 (Version None)
Quarter: 2005Q3

REPORT INFORMATION
  Report Type: 
  Country: None (occurrence: None)
  Receive Date: 20050919
  Receipt Date: 20050907
  Transmission Date: 20060218
  Serious: Yes (Death)
  Sender: FDA-Public Use
  Company Number: US-JNJFOC-20050902450

PATIENT
  Age: 57 Year

DRUGS (2)
  1. DIPHENHYDRAMINE HCL [Suspect]
     Route: 048
  2. METHADONE HCL [Suspect]
     Route: 048

REACTIONS (1)
  - COMPLETED SUICIDE [None]
